FAERS Safety Report 6335536-X (Version None)
Quarter: 2009Q3

REPORT INFORMATION
  Report Type: 
  Country: None (occurrence: None)
  Receive Date: 20090831
  Receipt Date: 20090818
  Transmission Date: 20100115
  Serious: Yes (Hospitalization)
  Sender: FDA-Public Use
  Company Number: JP-MYLANLABS-2009S1014704

PATIENT
  Age: 53 Year
  Sex: Male

DRUGS (4)
  1. HOMOCHLORCYCLIZINE [Suspect]
     Indication: ECZEMA
  2. FEXOFENADINE [Suspect]
     Indication: ECZEMA
  3. EPINASTINE [Suspect]
     Indication: ECZEMA
  4. DEXCHLORPHENIRAMINE [Suspect]
     Indication: ECZEMA

REACTIONS (1)
  - ELECTROCARDIOGRAM ST SEGMENT ABNORMAL [None]
